FAERS Safety Report 7189486-X (Version None)
Quarter: 2010Q4

REPORT INFORMATION
  Report Type: 
  Country: None (occurrence: None)
  Receive Date: 20101223
  Receipt Date: 20101213
  Transmission Date: 20110411
  Serious: Yes (Hospitalization)
  Sender: FDA-Public Use
  Company Number: US-BIOGENIDEC-2010BI043554

PATIENT
  Sex: Female

DRUGS (2)
  1. TYSABRI [Suspect]
     Indication: MULTIPLE SCLEROSIS
  2. STEROIDS [Concomitant]
     Indication: CONNECTIVE TISSUE NEOPLASM

REACTIONS (2)
  - HEMIPLEGIA [None]
  - NEOPLASM [None]
